FAERS Safety Report 21344261 (Version 1)
Quarter: 2022Q3

REPORT INFORMATION
  Report Type: Spontaneous
  Country: US (occurrence: US)
  Receive Date: 20220916
  Receipt Date: 20220916
  Transmission Date: 20221027
  Serious: Yes (Other)
  Sender: FDA-Public Use
  Company Number: US-PFIZER INC-PV202200063126

PATIENT
  Sex: Male

DRUGS (1)
  1. NORPACE [Suspect]
     Active Substance: DISOPYRAMIDE PHOSPHATE
     Indication: Adrenal disorder
     Dosage: UNK

REACTIONS (3)
  - Electrocardiogram abnormal [Unknown]
  - Cardiac disorder [Unknown]
  - Off label use [Unknown]

NARRATIVE: CASE EVENT DATE: 20220901
